APPROVED DRUG PRODUCT: CORDRAN
Active Ingredient: FLURANDRENOLIDE
Strength: 0.05%
Dosage Form/Route: OINTMENT;TOPICAL
Application: N012806 | Product #001
Applicant: INA PHARMACEUTICS INC
Approved: Approved Prior to Jan 1, 1982 | RLD: Yes | RS: No | Type: DISCN